FAERS Safety Report 9147259 (Version 1)
Quarter: 2013Q1

REPORT INFORMATION
  Report Type: Spontaneous
  Country: GB (occurrence: GB)
  Receive Date: 20130307
  Receipt Date: 20130307
  Transmission Date: 20140127
  Serious: Yes (Hospitalization)
  Sender: FDA-Public Use
  Company Number: GB-ASTRAZENECA-2013SE14626

PATIENT
  Age: 9 Month
  Sex: Female
  Weight: 5.9 kg

DRUGS (2)
  1. SYNAGIS [Suspect]
     Route: 030
     Dates: start: 20121204, end: 20121204
  2. SYNAGIS [Suspect]
     Route: 030
     Dates: start: 20130129, end: 20130129

REACTIONS (2)
  - Febrile convulsion [Unknown]
  - Infection [Unknown]
